FAERS Safety Report 17847417 (Version 1)
Quarter: 2020Q2

REPORT INFORMATION
  Report Type: Spontaneous
  Country: US (occurrence: US)
  Receive Date: 20200601
  Receipt Date: 20200601
  Transmission Date: 20200714
  Serious: No
  Sender: FDA-Public Use
  Company Number: US-APOTEX-2020AP007132

PATIENT

DRUGS (1)
  1. ZOLPIDEM [Suspect]
     Active Substance: ZOLPIDEM TARTRATE
     Indication: ALTERED STATE OF CONSCIOUSNESS
     Dosage: UNK
     Route: 065

REACTIONS (2)
  - Agitation [Unknown]
  - Off label use [Unknown]
